FAERS Safety Report 12523144 (Version 1)
Quarter: 2016Q3

REPORT INFORMATION
  Report Type: Spontaneous
  Country: GB (occurrence: GB)
  Receive Date: 20160701
  Receipt Date: 20160701
  Transmission Date: 20161109
  Serious: Yes (Disabling, Other)
  Sender: FDA-Public Use
  Company Number: GB-TAKEDA-2016MPI004754

PATIENT
  Age: 81 Year
  Sex: Male

DRUGS (7)
  1. VELCADE [Suspect]
     Active Substance: BORTEZOMIB
     Indication: PLASMA CELL MYELOMA
     Dosage: UNK
     Route: 065
     Dates: start: 20160225, end: 20160425
  2. PREDNISOLONE. [Suspect]
     Active Substance: PREDNISOLONE
     Indication: PLASMA CELL MYELOMA
     Dosage: 100 MG, QD
     Route: 048
     Dates: start: 20160225, end: 20160425
  3. ACICLOVIR [Concomitant]
     Active Substance: ACYCLOVIR
     Dosage: 400 MG, BID
     Route: 048
     Dates: start: 20160225, end: 20160425
  4. COTRIMOXAZOLE [Concomitant]
     Active Substance: SULFAMETHOXAZOLE\TRIMETHOPRIM
     Dosage: 480 MG, BID
     Route: 048
     Dates: start: 20160225, end: 20160425
  5. FLUCONAZOLE. [Concomitant]
     Active Substance: FLUCONAZOLE
     Dosage: 50 MG, QD
     Route: 048
     Dates: start: 20160225, end: 20160425
  6. LANSOPRAZOLE. [Concomitant]
     Active Substance: LANSOPRAZOLE
     Dosage: 30 MG, QD
     Route: 048
     Dates: start: 20160225, end: 20160425
  7. MELPHALAN [Suspect]
     Active Substance: MELPHALAN
     Indication: PLASMA CELL MYELOMA
     Dosage: 14 MG, QD
     Route: 048
     Dates: start: 20160225, end: 20160425

REACTIONS (3)
  - Neuropathy peripheral [Unknown]
  - Pain in extremity [Not Recovered/Not Resolved]
  - Muscle tightness [Unknown]

NARRATIVE: CASE EVENT DATE: 20160410
